FAERS Safety Report 25872606 (Version 2)
Quarter: 2025Q4

REPORT INFORMATION
  Report Type: Spontaneous
  Country: EU (occurrence: EU)
  Receive Date: 20251002
  Receipt Date: 20251112
  Transmission Date: 20260117
  Serious: Yes (Hospitalization, Other)
  Sender: ABBVIE
  Company Number: EU-ABBVIE-6481148

PATIENT
  Sex: Female

DRUGS (1)
  1. RINVOQ [Suspect]
     Active Substance: UPADACITINIB
     Indication: Psoriatic arthropathy
     Dosage: 15 MILLIGRAM
     Route: 048
     Dates: start: 20250811, end: 20250922

REACTIONS (10)
  - Electrocardiogram ST segment elevation [Recovering/Resolving]
  - Electrocardiogram ST segment abnormal [Unknown]
  - Blood triglycerides increased [Unknown]
  - Ventricular hypokinesia [Unknown]
  - Blood pressure increased [Unknown]
  - Ejection fraction decreased [Unknown]
  - Atrioventricular block first degree [Unknown]
  - Myocardial infarction [Recovering/Resolving]
  - Cardiac hypertrophy [Unknown]
  - Coronary angioplasty [Unknown]

NARRATIVE: CASE EVENT DATE: 20250101
